FAERS Safety Report 4299134-4 (Version None)
Quarter: 2004Q1

REPORT INFORMATION
  Report Type: 
  Country: None (occurrence: None)
  Receive Date: 20040217
  Receipt Date: 20040204
  Transmission Date: 20041129
  Serious: Yes (Hospitalization, Disabling)
  Sender: FDA-Public Use
  Company Number: HQ3812115AUG2002

PATIENT
  Age: 57 Year
  Sex: Female

DRUGS (4)
  1. DIMETAPP [Suspect]
     Indication: COUGH
     Dosage: 1 TABLET 1X PER 12 HR, ORAL
     Route: 048
     Dates: end: 20000701
  2. DIMETAPP [Suspect]
     Indication: NASOPHARYNGITIS
     Dosage: 1 TABLET 1X PER 12 HR, ORAL
     Route: 048
     Dates: end: 20000701
  3. DIMETAPP [Suspect]
     Indication: COUGH
     Dosage: 2 TSP 1X PER 4 HR, ORAL
     Route: 048
     Dates: start: 20000802, end: 20000806
  4. DIMETAPP [Suspect]
     Indication: NASOPHARYNGITIS
     Dosage: 2 TSP 1X PER 4 HR, ORAL
     Route: 048
     Dates: start: 20000802, end: 20000806

REACTIONS (6)
  - ANEURYSM [None]
  - CEREBROVASCULAR ACCIDENT [None]
  - HEMIPARESIS [None]
  - SUBARACHNOID HAEMORRHAGE [None]
  - TRANSIENT ISCHAEMIC ATTACK [None]
  - VISUAL FIELD DEFECT [None]
